FAERS Safety Report 8684589 (Version 3)
Quarter: 2012Q4

REPORT INFORMATION
  Report Type: 
  Country: US (occurrence: US)
  Receive Date: 20120726
  Receipt Date: 20120912
  Transmission Date: 20130627
  Serious: Yes (Other)
  Sender: FDA-Public Use
  Company Number: US-PFIZER INC-2012178793

PATIENT
  Age: 59 Year
  Sex: Female
  Weight: 79.37 kg

DRUGS (4)
  1. LYRICA [Suspect]
     Indication: PAIN
     Dosage: 50 mg, 3x/day
     Route: 048
     Dates: start: 2012
  2. LYRICA [Suspect]
     Indication: SCOLIOSIS
  3. NEURONTIN [Suspect]
     Indication: POST-TRAUMATIC STRESS DISORDER
     Dosage: 300 mg, 4x/day
     Route: 048
  4. NEURONTIN [Suspect]
     Dosage: 300 mg, 2x/day
     Route: 048
     Dates: start: 201209

REACTIONS (7)
  - Emphysema [Unknown]
  - Aortic aneurysm [Unknown]
  - Back pain [Unknown]
  - Nervousness [Unknown]
  - Malaise [Not Recovered/Not Resolved]
  - Feeling abnormal [Not Recovered/Not Resolved]
  - Pain [Not Recovered/Not Resolved]
